FAERS Safety Report 25283323 (Version 1)
Quarter: 2025Q2

REPORT INFORMATION
  Report Type: Spontaneous
  Country: CA (occurrence: CA)
  Receive Date: 20250508
  Receipt Date: 20250508
  Transmission Date: 20250716
  Serious: Yes (Life-Threatening, Hospitalization)
  Sender: PFIZER
  Company Number: CA-PFIZER INC-202500095504

PATIENT
  Age: 9 Year
  Sex: Male
  Weight: 24 kg

DRUGS (2)
  1. EPINEPHRINE [Suspect]
     Active Substance: EPINEPHRINE
     Indication: Abscess drainage
     Route: 058
  2. AMPHETAMINE\DEXTROAMPHETAMINE [Concomitant]
     Active Substance: AMPHETAMINE\DEXTROAMPHETAMINE

REACTIONS (7)
  - Global longitudinal strain [Recovered/Resolved]
  - Hypertension [Recovered/Resolved]
  - Poisoning [Recovered/Resolved]
  - Presyncope [Recovered/Resolved]
  - Tachycardia [Recovered/Resolved]
  - Troponin increased [Recovered/Resolved]
  - Off label use [Unknown]
